FAERS Safety Report 7567917-0 (Version None)
Quarter: 2011Q2

REPORT INFORMATION
  Report Type: 
  Country: None (occurrence: None)
  Receive Date: 20110616
  Receipt Date: 20110608
  Transmission Date: 20111010
  Serious: Yes (Hospitalization)
  Sender: FDA-Public Use
  Company Number: AMO-11-01

PATIENT
  Age: 28 Year
  Sex: Male

DRUGS (3)
  1. AMOXICILLIN [Suspect]
     Indication: BRONCHITIS
     Dosage: 1G/2XS DAY
  2. HYDROCORTISONE SODIUM [Concomitant]
  3. ORAL CETIRIZINE [Concomitant]

REACTIONS (11)
  - INFLAMMATION [None]
  - SINUS BRADYCARDIA [None]
  - HYPERHIDROSIS [None]
  - RASH ERYTHEMATOUS [None]
  - RASH GENERALISED [None]
  - KOUNIS SYNDROME [None]
  - PRURITUS GENERALISED [None]
  - DIZZINESS [None]
  - ACUTE MYOCARDIAL INFARCTION [None]
  - HYPERSENSITIVITY [None]
  - ALLERGIC MYOCARDITIS [None]
